FAERS Safety Report 11319971 (Version 1)
Quarter: 2015Q3

REPORT INFORMATION
  Report Type: Spontaneous
  Country: US (occurrence: None)
  Receive Date: 20150728
  Receipt Date: 20150728
  Transmission Date: 20151125
  Serious: No
  Sender: FDA-Public Use
  Company Number: None

PATIENT
  Age: 21 Year
  Sex: Female
  Weight: 61.24 kg

DRUGS (2)
  1. DICLEGIS [Suspect]
     Active Substance: DOXYLAMINE SUCCINATE\PYRIDOXINE HYDROCHLORIDE
     Indication: NAUSEA
     Route: 048
     Dates: start: 20150401, end: 20150727
  2. PREGNANCY VITAMINS [Concomitant]

REACTIONS (3)
  - Nausea [None]
  - Migraine [None]
  - Headache [None]

NARRATIVE: CASE EVENT DATE: 20150727
